FAERS Safety Report 18541043 (Version 1)
Quarter: 2020Q4

REPORT INFORMATION
  Report Type: Report from Study
  Country: ZA (occurrence: ZA)
  Receive Date: 20201124
  Receipt Date: 20201124
  Transmission Date: 20210114
  Serious: Yes (Death, Hospitalization, Other)
  Sender: FDA-Public Use
  Company Number: ZA-AMGEN LTD-ZAFSL2020187923

PATIENT
  Age: 60 Year
  Sex: Female

DRUGS (1)
  1. ARANESP [Suspect]
     Active Substance: DARBEPOETIN ALFA
     Indication: CHRONIC KIDNEY DISEASE
     Dosage: 30 MICROGRAM, Q2WK
     Route: 058
     Dates: start: 20191106, end: 20200922

REACTIONS (3)
  - Sepsis [Fatal]
  - Chronic kidney disease [Fatal]
  - Hypotension [Fatal]
